FAERS Safety Report 9455893 (Version 1)
Quarter: 2013Q3

REPORT INFORMATION
  Report Type: Spontaneous
  Country: US (occurrence: US)
  Receive Date: 20130813
  Receipt Date: 20130813
  Transmission Date: 20140515
  Serious: Yes (Hospitalization)
  Sender: FDA-Public Use
  Company Number: US-DYAX CORP.-2013DX000146

PATIENT
  Age: 55 Year
  Sex: Male
  Weight: 77.63 kg

DRUGS (10)
  1. KALBITOR [Suspect]
     Indication: HEREDITARY ANGIOEDEMA
     Route: 058
     Dates: start: 20130629, end: 20130629
  2. KALBITOR [Suspect]
     Route: 058
  3. CINRYZE [Concomitant]
     Indication: HEREDITARY ANGIOEDEMA
     Route: 042
  4. JENTADUETO [Concomitant]
     Indication: DIABETES MELLITUS
     Route: 048
  5. JENTADUETO [Concomitant]
  6. PRAVASTATIN SODIUM [Concomitant]
     Indication: BLOOD CHOLESTEROL ABNORMAL
     Route: 048
  7. RANITIDINE [Concomitant]
     Indication: GASTRIC DISORDER
     Route: 048
  8. MELATONIN [Concomitant]
     Indication: SLEEP DISORDER
     Route: 048
  9. WARFARIN [Concomitant]
     Indication: ANTICOAGULANT THERAPY
     Route: 048
  10. WARFARIN [Concomitant]
     Route: 048

REACTIONS (4)
  - Device related sepsis [Unknown]
  - Bacterial test positive [Unknown]
  - Bronchitis [Unknown]
  - Off label use [Not Recovered/Not Resolved]
